FAERS Safety Report 4433295-9 (Version None)
Quarter: 2004Q3

REPORT INFORMATION
  Report Type: 
  Country: None (occurrence: None)
  Receive Date: 20040824
  Receipt Date: 20040811
  Transmission Date: 20050211
  Serious: Yes (Other)
  Sender: FDA-Public Use
  Company Number: 2004054101

PATIENT
  Age: 56 Year
  Sex: Female
  Weight: 71.6683 kg

DRUGS (9)
  1. NEURONTIN [Suspect]
     Indication: SPINAL COLUMN STENOSIS
     Dosage: 900 MG (300 MG, 3 IN 1 D), ORAL
     Route: 048
     Dates: start: 20040715, end: 20040701
  2. HYZAAR (HYDROCHLOTHIAZIDE, LOSARTAN POTASSIUM) [Concomitant]
  3. HYOSCYAMINE [Concomitant]
  4. OXYCODONE HCL [Concomitant]
  5. FENTANYL [Concomitant]
  6. ALPRAZOLAM [Concomitant]
  7. PREDNISONE TAB [Concomitant]
  8. WARFARIN (WARFARIN) [Concomitant]
  9. ALL OTHER THERAPEUTIC PRODUCTS (ALL OTHER THERAPEUTIC PRODUCTS) [Concomitant]

REACTIONS (13)
  - BLOOD PRESSURE FLUCTUATION [None]
  - CONSCIOUSNESS FLUCTUATING [None]
  - DEHYDRATION [None]
  - DIPLOPIA [None]
  - DISORIENTATION [None]
  - DRY MOUTH [None]
  - FATIGUE [None]
  - FEELING ABNORMAL [None]
  - HEART RATE INCREASED [None]
  - KIDNEY INFECTION [None]
  - PRURITUS GENERALISED [None]
  - RASH [None]
  - SOMNOLENCE [None]
